FAERS Safety Report 7048504-X (Version None)
Quarter: 2010Q4

REPORT INFORMATION
  Report Type: 
  Country: None (occurrence: None)
  Receive Date: 20101007
  Receipt Date: 20100929
  Transmission Date: 20110411
  Serious: Yes (Hospitalization, Other)
  Sender: FDA-Public Use
  Company Number: 2010SP050195

PATIENT
  Sex: Female

DRUGS (2)
  1. IMPLANON [Suspect]
     Indication: CONTRACEPTION
     Dates: start: 20050101, end: 20081103
  2. IMPLANON [Suspect]
     Indication: CONTRACEPTION
     Dates: start: 20081103, end: 20100920

REACTIONS (1)
  - BREAST CANCER FEMALE [None]
